FAERS Safety Report 23835072 (Version 1)
Quarter: 2024Q2

REPORT INFORMATION
  Report Type: Spontaneous
  Country: FR (occurrence: FR)
  Receive Date: 20240509
  Receipt Date: 20240509
  Transmission Date: 20240715
  Serious: Yes (Other)
  Sender: FDA-Public Use
  Company Number: None

PATIENT
  Age: 68 Year
  Sex: Male
  Weight: 79 kg

DRUGS (4)
  1. XGEVA [Suspect]
     Active Substance: DENOSUMAB
     Indication: Prophylaxis
     Dosage: NR
     Route: 058
     Dates: start: 20231226, end: 20240118
  2. MEKTOVI [Suspect]
     Active Substance: BINIMETINIB
     Indication: Metastatic malignant melanoma
     Dosage: 3 CAPSULES MORNING AND EVENING, THEN FROM 02/12/2024 : 2 CAPSULES MORNING AND EVENING.
     Route: 048
     Dates: start: 20231108
  3. BRAFTOVI [Suspect]
     Active Substance: ENCORAFENIB
     Indication: Metastatic malignant melanoma
     Dosage: 6 CAPSULES PER DAY AT ONCE, FROM 02/12/2024 : 4 CAPSULES PER DAY
     Route: 048
     Dates: start: 20231108
  4. BACTRIM [Concomitant]
     Active Substance: SULFAMETHOXAZOLE\TRIMETHOPRIM
     Indication: Urinary tract infection
     Dosage: NR
     Route: 048
     Dates: start: 20240220, end: 20240403

REACTIONS (1)
  - Hepatic cytolysis [Recovering/Resolving]

NARRATIVE: CASE EVENT DATE: 20240104
